FAERS Safety Report 4393031-1 (Version None)
Quarter: 2004Q3

REPORT INFORMATION
  Report Type: 
  Country: None (occurrence: None)
  Receive Date: 20040708
  Receipt Date: 20040705
  Transmission Date: 20050211
  Serious: Yes (Other)
  Sender: FDA-Public Use
  Company Number: DE-GLAXOSMITHKLINE-D0044121A

PATIENT
  Age: 43 Year
  Sex: Male

DRUGS (4)
  1. ALBUTEROL [Suspect]
     Route: 055
     Dates: start: 19840101
  2. VENTOLAIR [Concomitant]
     Route: 065
  3. ZYRTEC [Concomitant]
     Route: 065
  4. LORANO [Concomitant]
     Route: 065

REACTIONS (1)
  - MACULAR DEGENERATION [None]
